FAERS Safety Report 5545240-3 (Version None)
Quarter: 2007Q4

REPORT INFORMATION
  Report Type: 
  Country: None (occurrence: None)
  Receive Date: 20071123
  Receipt Date: 20061101
  Transmission Date: 20080405
  Serious: Yes (Hospitalization)
  Sender: FDA-Public Use
  Company Number: US-JNJFOC-20061100711

PATIENT
  Age: 71 Year
  Sex: Male

DRUGS (8)
  1. LEVAQUIN [Suspect]
     Indication: CELLULITIS
     Dosage: 500 MG, 1 IN 1 DAY, ORAL
     Route: 048
     Dates: start: 20060401, end: 20060401
  2. NIASPAN [Suspect]
     Indication: BLOOD CHOLESTEROL INCREASED
     Dosage: 500 MG, 4 IN 1 DAY,
  3. COMBIVENT (COMBIVENT) UNSPECIFIED [Concomitant]
  4. AVAPRO (IRBESARTAN) UNSPECIFIED [Concomitant]
  5. QUININE (QUININE) UNSPECIFIED [Concomitant]
  6. ZOCOR [Concomitant]
  7. TOPROL XL (METOPROLOL SUCCINATE) UNSPECIFIED [Concomitant]
  8. TAGAMET (CIMETIDINE) UNSPECIFIED [Concomitant]

REACTIONS (6)
  - ARRHYTHMIA [None]
  - CHRONIC OBSTRUCTIVE PULMONARY DISEASE [None]
  - DYSPNOEA [None]
  - HYPERSENSITIVITY [None]
  - PNEUMONIA ASPIRATION [None]
  - RESPIRATORY FAILURE [None]
